FAERS Safety Report 9102615 (Version 1)
Quarter: 2013Q1

REPORT INFORMATION
  Report Type: Spontaneous
  Country: US (occurrence: US)
  Receive Date: 20130220
  Receipt Date: 20130220
  Transmission Date: 20140127
  Serious: Yes (Other)
  Sender: FDA-Public Use
  Company Number: CHPA2013US001985

PATIENT
  Age: 83 Year
  Sex: Female

DRUGS (1)
  1. EXCEDRIN EXTRA STRENGTH [Suspect]
     Indication: CHEST PAIN
     Dosage: 1 DF, PRN
     Route: 048
     Dates: start: 2009

REACTIONS (4)
  - Blood disorder [Unknown]
  - Therapeutic response increased [Unknown]
  - Off label use [Unknown]
  - Underdose [Unknown]
